FAERS Safety Report 6128019-3 (Version None)
Quarter: 2009Q1

REPORT INFORMATION
  Report Type: 
  Country: None (occurrence: None)
  Receive Date: 20090323
  Receipt Date: 20090312
  Transmission Date: 20090719
  Serious: Yes (Death, Hospitalization)
  Sender: FDA-Public Use
  Company Number: TH-JNJFOC-20090204262

PATIENT
  Age: 72 Year
  Sex: Male

DRUGS (18)
  1. DORIBAX [Suspect]
     Indication: NOSOCOMIAL INFECTION
     Route: 041
  2. PARACETAMOL [Concomitant]
  3. SIMVASTATIN [Concomitant]
  4. FLUIMUCIL [Concomitant]
  5. BCOZE [Concomitant]
  6. FOLIC ACID [Concomitant]
  7. FBC [Concomitant]
  8. RANITIDINE [Concomitant]
  9. SENOKOT [Concomitant]
  10. ISONIAZID [Concomitant]
  11. RIFAMPICIN [Concomitant]
  12. ETHAMBUTOL HCL [Concomitant]
  13. BERODUAL [Concomitant]
  14. VENTOLIN [Concomitant]
  15. COLISTIN SULFATE [Concomitant]
  16. FLUCONAZOLE [Concomitant]
     Route: 042
  17. DOPAMINE HCL [Concomitant]
  18. KABIVEN AND OMVI [Concomitant]

REACTIONS (4)
  - BLOOD PRESSURE DECREASED [None]
  - LOSS OF CONSCIOUSNESS [None]
  - RENAL IMPAIRMENT [None]
  - SEPTIC SHOCK [None]
